FAERS Safety Report 8269170 (Version 2)
Quarter: 2013Q2

REPORT INFORMATION
  Report Type: Spontaneous
  Country: CA (occurrence: CA)
  Receive Date: 20111130
  Receipt Date: 20130619
  Transmission Date: 20140414
  Serious: Yes (Life-Threatening, Other)
  Sender: FDA-Public Use
  Company Number: CA-PFIZER INC-2011289756

PATIENT
  Age: 64 Year
  Sex: Female

DRUGS (4)
  1. MORPHINE [Suspect]
     Indication: SURGERY
     Dosage: 2 MG, (0.025 MG/ML AT A RATE OF 5 ML/H FOR 4 H)
     Route: 008
  2. DESFLURANE [Concomitant]
     Indication: GENERAL ANAESTHESIA
     Dosage: MINIMUM ALVEOLAR CONCENTRATION OF 0.6 TO 0.7
  3. BUPIVACAINE [Concomitant]
     Dosage: 0.2% AT A RATE OF 5 ML/H FOR 4 H
     Route: 008
  4. FENTANYL [Concomitant]
     Dosage: 0.1 MG, UNK
     Route: 042

REACTIONS (3)
  - Respiratory depression [Recovering/Resolving]
  - Unresponsive to stimuli [Recovered/Resolved]
  - Hypotension [Recovering/Resolving]
